FAERS Safety Report 24299325 (Version 1)
Quarter: 2024Q3

REPORT INFORMATION
  Report Type: Spontaneous
  Country: KR (occurrence: KR)
  Receive Date: 20240909
  Receipt Date: 20240909
  Transmission Date: 20241016
  Serious: Yes (Hospitalization)
  Sender: NOVARTIS
  Company Number: KR-002147023-NVSC2024KR178702

PATIENT
  Age: 53 Year
  Sex: Female

DRUGS (4)
  1. FEMARA [Suspect]
     Active Substance: LETROZOLE
     Indication: Breast cancer metastatic
     Dosage: UNK
     Route: 065
  2. KISQALI [Suspect]
     Active Substance: RIBOCICLIB
     Indication: Breast cancer metastatic
     Dosage: UNK
     Route: 065
  3. GOSERELIN [Suspect]
     Active Substance: GOSERELIN
     Indication: Breast cancer metastatic
     Dosage: UNK
     Route: 065
  4. VITA-D [Concomitant]
     Indication: Vitamin D deficiency
     Dosage: UNK (EVERY 2 MONTHS)
     Route: 065

REACTIONS (15)
  - Anxiety [Unknown]
  - Depression [Unknown]
  - Decreased appetite [Unknown]
  - Dyspepsia [Unknown]
  - Oedema [Unknown]
  - Diarrhoea [Unknown]
  - Constipation [Unknown]
  - Pruritus [Unknown]
  - Insomnia [Not Recovered/Not Resolved]
  - Pain [Unknown]
  - Headache [Unknown]
  - Dermatitis [Not Recovered/Not Resolved]
  - Vitiligo [Not Recovered/Not Resolved]
  - Myalgia [Not Recovered/Not Resolved]
  - Arthralgia [Not Recovered/Not Resolved]
